FAERS Safety Report 6593008-1 (Version None)
Quarter: 2010Q1

REPORT INFORMATION
  Report Type: 
  Country: None (occurrence: None)
  Receive Date: 20100218
  Receipt Date: 20100218
  Transmission Date: 20100710
  Serious: Yes (Hospitalization)
  Sender: FDA-Public Use
  Company Number: None

PATIENT
  Age: 24 Year
  Sex: Male
  Weight: 88.905 kg

DRUGS (3)
  1. CLOZAPINE [Suspect]
     Dosage: 800MG PO 10 DAYS
     Route: 048
  2. LAMICTAL CD [Concomitant]
  3. CLOZAPINE [Concomitant]

REACTIONS (1)
  - GRAND MAL CONVULSION [None]
